FAERS Safety Report 13518243 (Version 2)
Quarter: 2017Q2

REPORT INFORMATION
  Report Type: Spontaneous
  Country: US (occurrence: US)
  Receive Date: 20170505
  Receipt Date: 20170601
  Transmission Date: 20170830
  Serious: No
  Sender: FDA-Public Use
  Company Number: US-GLAXOSMITHKLINE-US2017065479

PATIENT
  Age: 59 Year
  Sex: Male

DRUGS (7)
  1. BREO ELLIPTA [Suspect]
     Active Substance: FLUTICASONE FUROATE\VILANTEROL TRIFENATATE
     Indication: CHRONIC OBSTRUCTIVE PULMONARY DISEASE
     Dosage: 1 PUFF(S), QOD
     Route: 055
     Dates: start: 201701
  2. DILTIAZEM. [Concomitant]
     Active Substance: DILTIAZEM
  3. IBUPROFEN. [Concomitant]
     Active Substance: IBUPROFEN
  4. VITAMIN D3 [Concomitant]
     Active Substance: CHOLECALCIFEROL
  5. ASPIRIN. [Concomitant]
     Active Substance: ASPIRIN
  6. VALSARTAN. [Concomitant]
     Active Substance: VALSARTAN
  7. ALBUTEROL INHALATION POWDER [Concomitant]
     Active Substance: ALBUTEROL

REACTIONS (5)
  - Drug ineffective [Unknown]
  - Incorrect product storage [Unknown]
  - Chronic obstructive pulmonary disease [Recovered/Resolved]
  - Product use issue [Unknown]
  - Intentional underdose [Unknown]

NARRATIVE: CASE EVENT DATE: 2017
